FAERS Safety Report 4973708-7 (Version None)
Quarter: 2006Q2

REPORT INFORMATION
  Report Type: 
  Country: None (occurrence: None)
  Receive Date: 20060414
  Receipt Date: 20051031
  Transmission Date: 20061013
  Serious: Yes (Hospitalization, Disabling)
  Sender: FDA-Public Use
  Company Number: US-MERCK-0511USA00082

PATIENT
  Age: 43 Year
  Sex: Male
  Weight: 82 kg

DRUGS (7)
  1. VIOXX [Suspect]
     Indication: ARTHRITIS
     Route: 048
     Dates: start: 19990101, end: 20040101
  2. PLAVIX [Concomitant]
     Indication: ANTICOAGULANT THERAPY
     Route: 065
  3. ZOCOR [Concomitant]
     Indication: BLOOD CHOLESTEROL
     Route: 065
  4. PRILOSEC [Concomitant]
     Indication: GASTROOESOPHAGEAL REFLUX DISEASE
     Route: 065
  5. ASPIRIN [Concomitant]
     Indication: CARDIAC DISORDER
     Route: 065
  6. OXYCONTIN [Concomitant]
     Route: 065
  7. METOPROLOL [Concomitant]
     Indication: BLOOD PRESSURE
     Route: 065

REACTIONS (6)
  - ARTERIOSCLEROSIS [None]
  - BACK DISORDER [None]
  - CARDIAC DISORDER [None]
  - CHEST PAIN [None]
  - CORONARY ARTERY DISEASE [None]
  - CORONARY ARTERY STENOSIS [None]
